FAERS Safety Report 7215388-6 (Version None)
Quarter: 2011Q1

REPORT INFORMATION
  Report Type: 
  Country: None (occurrence: None)
  Receive Date: 20110105
  Receipt Date: 20110105
  Transmission Date: 20110831
  Serious: Yes (Hospitalization)
  Sender: FDA-Public Use
  Company Number: None

PATIENT
  Sex: Female
  Weight: 71.66 kg

DRUGS (2)
  1. CARBOPLATIN [Suspect]
     Dosage: 472 MG
     Dates: end: 20101217
  2. TAXOL [Suspect]
     Dosage: 300 MG
     Dates: end: 20101223

REACTIONS (7)
  - LACERATION [None]
  - WOUND SECRETION [None]
  - CELLULITIS [None]
  - MYOCARDIAL INFARCTION [None]
  - CORONARY ARTERY OCCLUSION [None]
  - EMBOLISM ARTERIAL [None]
  - OEDEMA PERIPHERAL [None]
